FAERS Safety Report 24346610 (Version 1)
Quarter: 2024Q3

REPORT INFORMATION
  Report Type: Report from Study
  Country: CA (occurrence: CA)
  Receive Date: 20240921
  Receipt Date: 20240921
  Transmission Date: 20241017
  Serious: Yes (Other)
  Sender: None
  Company Number: CA-UCBSA-2023021418

PATIENT
  Sex: Male

DRUGS (6)
  1. Certolizumab pegol [Suspect]
     Dosage: 400 MILLIGRAM, EV 2 WEEKS(QOW)
     Route: 058
     Dates: start: 20230411
  2. Certolizumab pegol [Suspect]
     Dosage: 200 MILLIGRAM, EV 2 WEEKS(QOW)
     Route: 058
  3. Certolizumab pegol [Suspect]
     Dosage: 200 MILLIGRAM, EV 2 WEEKS(QOW)
     Route: 058
     Dates: start: 20230606
  4. Certolizumab pegol [Suspect]
     Dosage: 200 MILLIGRAM, EV 2 WEEKS(QOW)
     Route: 058
     Dates: start: 20230707
  5. Certolizumab pegol [Suspect]
     Dosage: 200 MILLIGRAM, EVERY 3 OR 4 WEEKS
     Route: 058
  6. Certolizumab pegol [Suspect]
     Dosage: 200 MILLIGRAM, EVERY 2 OR 3 WEEKS
     Route: 058

REACTIONS (20)
  - Ankylosing spondylitis [Unknown]
  - Rhinorrhoea [Recovered/Resolved]
  - Fatigue [Recovered/Resolved]
  - Nasal discharge discolouration [Recovering/Resolving]
  - Pallor [Recovered/Resolved]
  - Asthenia [Recovered/Resolved]
  - SARS-CoV-2 test negative [Unknown]
  - Malaise [Unknown]
  - Nasopharyngitis [Recovered/Resolved]
  - Dysphonia [Unknown]
  - Pain in extremity [Unknown]
  - Pain [Not Recovered/Not Resolved]
  - Sinusitis [Unknown]
  - Bronchitis [Unknown]
  - Asthma [Unknown]
  - Cough [Recovering/Resolving]
  - Therapeutic response shortened [Unknown]
  - Product dose omission issue [Unknown]
  - Intentional dose omission [Unknown]
  - Inappropriate schedule of product administration [Unknown]

NARRATIVE: CASE EVENT DATE: 20230101
